FAERS Safety Report 22625283 (Version 4)
Quarter: 2024Q2

REPORT INFORMATION
  Report Type: Report from Study
  Country: CN (occurrence: CN)
  Receive Date: 20230621
  Receipt Date: 20240418
  Transmission Date: 20240716
  Serious: Yes (Life-Threatening)
  Sender: FDA-Public Use
  Company Number: CN-PFIZER INC-PV202300108158

PATIENT
  Age: 35 Year
  Sex: Female
  Weight: 60 kg

DRUGS (10)
  1. CYTARABINE [Suspect]
     Active Substance: CYTARABINE
     Indication: Acute myeloid leukaemia
     Dosage: 1700 MG, QD
     Route: 041
     Dates: start: 20230412, end: 20230416
  2. CYTARABINE [Suspect]
     Active Substance: CYTARABINE
     Dosage: 3400 MG, Q12H
     Route: 041
     Dates: start: 20230602, end: 20230602
  3. CYTARABINE [Suspect]
     Active Substance: CYTARABINE
     Dosage: 3400 MG, Q12H
     Route: 041
     Dates: start: 20230604, end: 20230604
  4. CYTARABINE [Suspect]
     Active Substance: CYTARABINE
     Dosage: 3400 MG, Q12H
     Route: 041
     Dates: start: 20230606, end: 20230606
  5. INVESTIGATIONAL PRODUCT [Suspect]
     Active Substance: INVESTIGATIONAL PRODUCT
     Indication: Acute myeloid leukaemia
     Dosage: UNK
     Dates: start: 20230411, end: 20230411
  6. INVESTIGATIONAL PRODUCT [Suspect]
     Active Substance: INVESTIGATIONAL PRODUCT
     Dosage: UNK
     Dates: start: 20230412, end: 20230418
  7. INVESTIGATIONAL PRODUCT [Suspect]
     Active Substance: INVESTIGATIONAL PRODUCT
     Dosage: UNK
     Dates: start: 20230601, end: 20230601
  8. INVESTIGATIONAL PRODUCT [Suspect]
     Active Substance: INVESTIGATIONAL PRODUCT
     Dosage: UNK
     Dates: start: 20230602, end: 20230608
  9. MITOXANTRONE [Suspect]
     Active Substance: MITOXANTRONE HYDROCHLORIDE
     Indication: Acute myeloid leukaemia
     Dosage: 10.2 MG, QD, 25/12.5 MILLIGRAM PER MILLILITRE
     Route: 041
     Dates: start: 20230412, end: 20230416
  10. ETOPOSIDE [Suspect]
     Active Substance: ETOPOSIDE
     Indication: Acute myeloid leukaemia
     Dosage: 170 MG, QD, 0.1/5 GRAM PER MILLILITRE
     Route: 041
     Dates: start: 20230412, end: 20230414

REACTIONS (1)
  - Pneumonia fungal [Recovered/Resolved]

NARRATIVE: CASE EVENT DATE: 20230412
